FAERS Safety Report 4402811-5 (Version None)
Quarter: 2004Q3

REPORT INFORMATION
  Report Type: 
  Country: None (occurrence: None)
  Receive Date: 20040719
  Receipt Date: 20040709
  Transmission Date: 20050211
  Serious: Yes (Other)
  Sender: FDA-Public Use
  Company Number: 2003145072US

PATIENT
  Age: 69 Year
  Sex: Male

DRUGS (6)
  1. ZYVOX [Suspect]
     Indication: BACTERIAL INFECTION
     Dosage: 600 MG, BID, ORAL
     Route: 048
     Dates: start: 20011001, end: 20020501
  2. ZYVOX [Suspect]
     Indication: BACTERIAL INFECTION
     Dosage: 600 MG, BID, ORAL
     Route: 048
     Dates: start: 20020701, end: 20021001
  3. GLIPIZIDE [Concomitant]
  4. TRIAMTHIAZID [Concomitant]
  5. FERROUS SULFATE TAB [Concomitant]
  6. ACETAMINOPHEN W/OXYCODONE (OXYCODONE HYDROCHLORIDE) [Concomitant]

REACTIONS (10)
  - ARTHRALGIA [None]
  - JOINT SWELLING [None]
  - NEUROGENIC BLADDER [None]
  - PENILE PAIN [None]
  - PENIS DISORDER [None]
  - PERIPHERAL SENSORIMOTOR NEUROPATHY [None]
  - SENSORY LOSS [None]
  - STAPHYLOCOCCAL INFECTION [None]
  - VISION BLURRED [None]
  - VITAMIN B12 DEFICIENCY [None]
